FAERS Safety Report 12963177 (Version 1)
Quarter: 2016Q4

REPORT INFORMATION
  Report Type: Spontaneous
  Country: US (occurrence: US)
  Receive Date: 20161122
  Receipt Date: 20161122
  Transmission Date: 20170207
  Serious: Yes (Hospitalization)
  Sender: FDA-Public Use
  Company Number: US-CIPLA LTD.-2016US21266

PATIENT

DRUGS (1)
  1. CYCLOBENZAPRINE [Suspect]
     Active Substance: CYCLOBENZAPRINE
     Dosage: UNK
     Route: 065

REACTIONS (5)
  - Overdose [Unknown]
  - Depressed level of consciousness [Unknown]
  - Electrocardiogram ST segment elevation [Recovered/Resolved]
  - Anticholinergic syndrome [Unknown]
  - Ileus [Unknown]
